FAERS Safety Report 21342028 (Version 2)
Quarter: 2022Q4

REPORT INFORMATION
  Report Type: Spontaneous
  Country: JP (occurrence: JP)
  Receive Date: 20220916
  Receipt Date: 20221017
  Transmission Date: 20230112
  Serious: Yes (Hospitalization, Other)
  Sender: FDA-Public Use
  Company Number: JP-ASTELLAS-2022JP012680

PATIENT
  Age: 7 Decade
  Sex: Male

DRUGS (1)
  1. TACROLIMUS [Suspect]
     Active Substance: TACROLIMUS
     Indication: Liver transplant
     Dosage: 3 MG/DAY, UNKNOWN FREQ.
     Route: 048
     Dates: start: 202208, end: 20220824

REACTIONS (2)
  - Dysphagia [Not Recovered/Not Resolved]
  - Guillain-Barre syndrome [Unknown]

NARRATIVE: CASE EVENT DATE: 20220824
